FAERS Safety Report 9543547 (Version 3)
Quarter: 2014Q2

REPORT INFORMATION
  Report Type: Report from Study
  Country: VE (occurrence: VE)
  Receive Date: 20130923
  Receipt Date: 20140512
  Transmission Date: 20141212
  Serious: Yes (Death)
  Sender: FDA-Public Use
  Company Number: VE-ABBVIE-13P-178-1149967-00

PATIENT
  Age: 80 Year
  Sex: Male

DRUGS (3)
  1. ZEMPLAR [Suspect]
     Indication: RENAL FAILURE CHRONIC
     Dosage: 10MCG
     Route: 042
     Dates: start: 201203, end: 20130225
  2. ZEMPLAR [Suspect]
     Indication: CARDIAC DISORDER
  3. ZEMPLAR [Suspect]
     Indication: NEPHROPATHY

REACTIONS (2)
  - Cardiac disorder [Fatal]
  - Cardiac failure [Fatal]
